FAERS Safety Report 19508379 (Version 1)
Quarter: 2021Q3

REPORT INFORMATION
  Report Type: Spontaneous
  Country: AT (occurrence: AT)
  Receive Date: 20210708
  Receipt Date: 20210708
  Transmission Date: 20211014
  Serious: Yes (Hospitalization, Other)
  Sender: FDA-Public Use
  Company Number: NVSC2021AT145626

PATIENT
  Age: 72 Year
  Sex: Female

DRUGS (14)
  1. EZETROL [Interacting]
     Active Substance: EZETIMIBE
     Indication: HEART TRANSPLANT
     Dosage: 80 MG
     Route: 048
     Dates: start: 201101, end: 20210601
  2. RAMIPRIL. [Concomitant]
     Active Substance: RAMIPRIL
     Indication: HYPERTENSION
     Dosage: UNK
     Route: 065
     Dates: start: 202011
  3. UROSIN [Concomitant]
     Active Substance: ALLOPURINOL
     Indication: HYPERURICAEMIA
     Dosage: UNK
     Route: 065
     Dates: start: 202105
  4. SORTIS [Interacting]
     Active Substance: ATORVASTATIN
     Indication: HEART TRANSPLANT
     Dosage: 80 MG, QD
     Route: 048
     Dates: start: 201601, end: 20210525
  5. SORTIS [Interacting]
     Active Substance: ATORVASTATIN
     Indication: MYOCARDIAL INFARCTION
  6. EZETROL [Interacting]
     Active Substance: EZETIMIBE
     Indication: MYOCARDIAL INFARCTION
     Dosage: 10 MG, QD
     Route: 048
  7. SPASMOLYT [Concomitant]
     Active Substance: TROSPIUM CHLORIDE
     Indication: MICTURITION DISORDER
     Dosage: UNK
     Route: 065
     Dates: start: 20210610
  8. ELIQUIS [Interacting]
     Active Substance: APIXABAN
     Indication: CEREBROVASCULAR ACCIDENT PROPHYLAXIS
     Dosage: 10 MG, QD (5 MG, BID)
     Route: 048
     Dates: start: 20210505
  9. PRALUENT [Concomitant]
     Active Substance: ALIROCUMAB
     Indication: HYPERCHOLESTEROLAEMIA
     Dosage: UNK
     Route: 065
     Dates: start: 20210601
  10. PANTOLOC [Concomitant]
     Active Substance: PANTOPRAZOLE SODIUM
     Indication: PRODUCT USED FOR UNKNOWN INDICATION
     Dosage: UNK
     Route: 065
     Dates: start: 202009
  11. TOREM [Concomitant]
     Active Substance: TORSEMIDE
     Indication: EJECTION FRACTION ABNORMAL
     Dosage: UNK
     Route: 065
     Dates: start: 201101
  12. CELLCEPT [Concomitant]
     Active Substance: MYCOPHENOLATE MOFETIL\MYCOPHENOLATE MOFETIL HYDROCHLORIDE
     Indication: HEART TRANSPLANT
     Dosage: UNK
     Route: 065
     Dates: start: 1994
  13. SANDIMMUN [Suspect]
     Active Substance: CYCLOSPORINE
     Indication: HEART TRANSPLANT
     Dosage: 100 MG, QD (50 MG, BID)
     Route: 048
  14. CONCOR [Concomitant]
     Active Substance: BISOPROLOL FUMARATE
     Indication: ATRIAL FIBRILLATION
     Dosage: UNK
     Route: 065
     Dates: start: 201202

REACTIONS (3)
  - Rhabdomyolysis [Recovered/Resolved]
  - Paraparesis [Recovered/Resolved]
  - Drug interaction [Unknown]

NARRATIVE: CASE EVENT DATE: 20210522
